FAERS Safety Report 25021282 (Version 1)
Quarter: 2025Q1

REPORT INFORMATION
  Report Type: Spontaneous
  Country: US (occurrence: US)
  Receive Date: 20250228
  Receipt Date: 20250228
  Transmission Date: 20250409
  Serious: Yes (Other)
  Sender: STRIDES
  Company Number: US-STRIDES PHARMA UK LTD.-2025SP000660

PATIENT

DRUGS (6)
  1. PREDNISOLONE [Suspect]
     Active Substance: PREDNISOLONE
     Indication: Alopecia universalis
     Route: 065
  2. CYCLOSPORINE [Suspect]
     Active Substance: CYCLOSPORINE
     Indication: Alopecia universalis
     Route: 065
  3. METHOTREXATE [Suspect]
     Active Substance: METHOTREXATE
     Indication: Alopecia universalis
     Route: 065
  4. KENALOG [Suspect]
     Active Substance: TRIAMCINOLONE ACETONIDE
     Indication: Alopecia universalis
     Route: 026
  5. DUPILUMAB [Suspect]
     Active Substance: DUPILUMAB
     Indication: Alopecia universalis
     Route: 065
  6. MINOXIDIL [Suspect]
     Active Substance: MINOXIDIL
     Indication: Alopecia universalis
     Route: 048

REACTIONS (2)
  - Conjunctivitis [Unknown]
  - Off label use [Unknown]
